FAERS Safety Report 5890026-3 (Version None)
Quarter: 2008Q3

REPORT INFORMATION
  Report Type: 
  Country: None (occurrence: None)
  Receive Date: 20080919
  Receipt Date: 20080911
  Transmission Date: 20090109
  Serious: Yes (Hospitalization)
  Sender: FDA-Public Use
  Company Number: GB-PFIZER INC-2008069348

PATIENT
  Sex: Male
  Weight: 99.1 kg

DRUGS (7)
  1. SULFASALAZINE [Suspect]
     Indication: RHEUMATOID ARTHRITIS
     Route: 048
     Dates: start: 20070802, end: 20070830
  2. SULFASALAZINE [Suspect]
     Indication: SERONEGATIVE ARTHRITIS
  3. NAPROXEN [Concomitant]
     Indication: ARTHRITIS
     Route: 048
  4. SIMVASTATIN [Concomitant]
     Route: 048
  5. LISINOPRIL [Concomitant]
     Route: 048
  6. AMLODIPINE [Concomitant]
     Route: 048
  7. DOXAZOSIN MESYLATE [Concomitant]
     Route: 048

REACTIONS (3)
  - FATIGUE [None]
  - RASH [None]
  - STEVENS-JOHNSON SYNDROME [None]
